FAERS Safety Report 21408709 (Version 1)
Quarter: 2022Q4

REPORT INFORMATION
  Report Type: Spontaneous
  Country: US (occurrence: None)
  Receive Date: 20221004
  Receipt Date: 20221004
  Transmission Date: 20230112
  Serious: Yes (Disabling)
  Sender: FDA-Public Use
  Company Number: None

PATIENT
  Age: 38 Year
  Sex: Male
  Weight: 62.1 kg

DRUGS (28)
  1. CIPROFLOXACIN [Suspect]
     Active Substance: CIPROFLOXACIN
     Indication: Lyme disease
     Dosage: OTHER QUANTITY : 7 INJECTION(S)?FREQUENCY : DAILY?
     Route: 042
     Dates: start: 20191122, end: 20191212
  2. CIPROFLOXACIN [Suspect]
     Active Substance: CIPROFLOXACIN
     Indication: Bartonellosis
  3. HYDROXYCHLOROQUINE [Concomitant]
     Active Substance: HYDROXYCHLOROQUINE
  4. MEPRON [Concomitant]
     Active Substance: ATOVAQUONE
  5. METHYLENE BLUE [Concomitant]
     Active Substance: METHYLENE BLUE
  6. BACTRIM [Concomitant]
     Active Substance: SULFAMETHOXAZOLE\TRIMETHOPRIM
  7. FLAGYL [Concomitant]
     Active Substance: METRONIDAZOLE\METRONIDAZOLE HYDROCHLORIDE
  8. VENOFER [Concomitant]
     Active Substance: IRON SUCROSE
  9. AZITHROMYCIN [Concomitant]
     Active Substance: AZITHROMYCIN
  10. ZOFRAN [Concomitant]
     Active Substance: ONDANSETRON HYDROCHLORIDE
  11. Enula [Concomitant]
  12. DIETARY SUPPLEMENT [Concomitant]
     Active Substance: DIETARY SUPPLEMENT
  13. cryptolepis [Concomitant]
  14. COLACE [Concomitant]
     Active Substance: DOCUSATE SODIUM
  15. LACTOFERRIN [Concomitant]
     Active Substance: LACTOFERRIN
  16. XYLITOL [Concomitant]
     Active Substance: XYLITOL
  17. ZINC [Concomitant]
     Active Substance: ZINC
  18. IODINE [Concomitant]
     Active Substance: IODINE
  19. MAGNESIUM [Concomitant]
     Active Substance: MAGNESIUM
  20. COENZYME Q10 [Concomitant]
     Active Substance: DIETARY SUPPLEMENT\UBIDECARENONE
  21. PRASTERONE [Concomitant]
     Active Substance: PRASTERONE
  22. FISH OIL [Concomitant]
     Active Substance: FISH OIL
  23. VITAMIN D [Concomitant]
     Active Substance: VITAMIN D NOS
  24. METHYLCOBALAMIN [Concomitant]
     Active Substance: METHYLCOBALAMIN
  25. VITAMIN C [Concomitant]
     Active Substance: ASCORBIC ACID
  26. L ORNITHINE [Concomitant]
  27. SELENIUM [Concomitant]
     Active Substance: SELENIUM
  28. UNSPECIFIED INGREDIENT [Concomitant]
     Active Substance: UNSPECIFIED INGREDIENT

REACTIONS (8)
  - Neck pain [None]
  - Tendonitis [None]
  - Myalgia [None]
  - Gait inability [None]
  - Neuropathy peripheral [None]
  - Hypoaesthesia [None]
  - Asthenia [None]
  - Quality of life decreased [None]

NARRATIVE: CASE EVENT DATE: 20191122
